FAERS Safety Report 6636264-3 (Version None)
Quarter: 2010Q1

REPORT INFORMATION
  Report Type: 
  Country: None (occurrence: None)
  Receive Date: 20100316
  Receipt Date: 20100303
  Transmission Date: 20100710
  Serious: Yes (Other)
  Sender: FDA-Public Use
  Company Number: US-PFIZER INC-2010027541

PATIENT
  Age: 40 Year
  Sex: Female

DRUGS (3)
  1. XANAX [Suspect]
  2. LUNESTA [Suspect]
     Indication: INSOMNIA
     Dosage: 3 MG, UNK
     Route: 048
     Dates: start: 20091101, end: 20091201
  3. LUNESTA [Suspect]
     Dosage: 1 MG, UNK
     Route: 048
     Dates: start: 20100101

REACTIONS (1)
  - SUICIDAL IDEATION [None]
